FAERS Safety Report 6497169-4 (Version None)
Quarter: 2009Q4

REPORT INFORMATION
  Report Type: 
  Country: None (occurrence: None)
  Receive Date: 20091215
  Receipt Date: 20090508
  Transmission Date: 20100525
  Serious: No
  Sender: FDA-Public Use
  Company Number: A0783216A

PATIENT
  Age: 67 Year
  Sex: Male

DRUGS (5)
  1. AVODART [Suspect]
     Indication: BENIGN PROSTATIC HYPERPLASIA
     Dosage: .5MG PER DAY
     Route: 048
     Dates: start: 20080101
  2. INSULIN [Concomitant]
  3. SYNTHROID [Concomitant]
  4. ZOCOR [Concomitant]
  5. ZESTRIL [Concomitant]

REACTIONS (4)
  - DISTURBANCE IN SEXUAL AROUSAL [None]
  - DRUG INEFFECTIVE [None]
  - SEXUAL DYSFUNCTION [None]
  - URINE FLOW DECREASED [None]
